FAERS Safety Report 9731795 (Version 1)
Quarter: 2013Q4

REPORT INFORMATION
  Report Type: Spontaneous
  Country: US (occurrence: US)
  Receive Date: 20131205
  Receipt Date: 20131205
  Transmission Date: 20140711
  Serious: No
  Sender: FDA-Public Use
  Company Number: US-BAYER-2013-148602

PATIENT
  Sex: Female

DRUGS (3)
  1. BAYER GENUINE ASPIRIN ORIGINAL STRENGTH [Suspect]
     Indication: HEADACHE
     Dosage: 2 DF, UNK
  2. ALEVE CAPLET [Suspect]
     Indication: HEADACHE
     Dosage: 1 DF
  3. IBUPROFEN [Concomitant]
     Dosage: 4 DF, UNK

REACTIONS (2)
  - Nausea [None]
  - Drug ineffective [None]
